FAERS Safety Report 15081213 (Version 1)
Quarter: 2018Q2

REPORT INFORMATION
  Report Type: Spontaneous
  Country: US (occurrence: US)
  Receive Date: 20180628
  Receipt Date: 20180628
  Transmission Date: 20180711
  Serious: Yes (Other)
  Sender: FDA-Public Use
  Company Number: US-ACCORD-066844

PATIENT
  Age: 66 Year
  Sex: Female
  Weight: 45.36 kg

DRUGS (1)
  1. CLONAZEPAM ACCORD [Suspect]
     Active Substance: CLONAZEPAM
     Indication: RESTLESS LEGS SYNDROME
     Dosage: STRENGTH: 0.5 MG, 1.5 TABLETS QHS (AT BEDTIME)
     Route: 048
     Dates: start: 20180328

REACTIONS (20)
  - Skin haemorrhage [Unknown]
  - Dysphonia [Unknown]
  - Weight decreased [Unknown]
  - Solar lentigo [Unknown]
  - Aggression [Unknown]
  - Rash [Unknown]
  - Product substitution issue [Unknown]
  - Dyspnoea [Unknown]
  - Alopecia [Unknown]
  - Wrong technique in product usage process [Unknown]
  - Amnesia [Unknown]
  - Abnormal behaviour [Unknown]
  - Swelling [Unknown]
  - Eczema [Unknown]
  - Fatigue [Unknown]
  - Rosacea [Unknown]
  - Balance disorder [Unknown]
  - Insomnia [Unknown]
  - Decreased appetite [Unknown]
  - Off label use [Unknown]
